FAERS Safety Report 15041049 (Version 3)
Quarter: 2018Q4

REPORT INFORMATION
  Report Type: Report from Study
  Country: CA (occurrence: CA)
  Receive Date: 20180621
  Receipt Date: 20181008
  Transmission Date: 20190204
  Serious: Yes (Hospitalization, Other)
  Sender: FDA-Public Use
  Company Number: CA-BRISTOL-MYERS SQUIBB COMPANY-BMS-2017-096008

PATIENT
  Age: 70 Year
  Sex: Female

DRUGS (2)
  1. ABATACEPT [Suspect]
     Active Substance: ABATACEPT
     Indication: RHEUMATOID ARTHRITIS
     Dosage: 750 MG, Q4WK
     Route: 042
  2. ABATACEPT [Suspect]
     Active Substance: ABATACEPT
     Indication: PRODUCT USED FOR UNKNOWN INDICATION
     Dosage: 1000 MG, Q4WK
     Route: 042
     Dates: start: 20131031

REACTIONS (14)
  - Pain in extremity [Unknown]
  - Limb injury [Unknown]
  - Road traffic accident [Not Recovered/Not Resolved]
  - Inappropriate schedule of product administration [Unknown]
  - Cellulitis [Recovering/Resolving]
  - Cough [Unknown]
  - Benign neoplasm [Unknown]
  - Ecchymosis [Unknown]
  - Rhinorrhoea [Unknown]
  - Cataract [Recovering/Resolving]
  - Influenza like illness [Recovered/Resolved]
  - Erythema [Not Recovered/Not Resolved]
  - Arthralgia [Unknown]
  - Pain [Unknown]

NARRATIVE: CASE EVENT DATE: 20180207
